FAERS Safety Report 17606541 (Version 2)
Quarter: 2020Q2

REPORT INFORMATION
  Report Type: Spontaneous
  Country: US (occurrence: US)
  Receive Date: 20200331
  Receipt Date: 20200413
  Transmission Date: 20200713
  Serious: Yes (Other)
  Sender: FDA-Public Use
  Company Number: US-TEVA-2020-US-1213971

PATIENT
  Age: 18 Year
  Sex: Female

DRUGS (5)
  1. BRIMONIDINE TARTRATE. [Concomitant]
     Active Substance: BRIMONIDINE TARTRATE
     Indication: MALIGNANT GLAUCOMA
     Route: 061
  2. TIMOLOL MALEATE. [Concomitant]
     Active Substance: TIMOLOL MALEATE
     Indication: MALIGNANT GLAUCOMA
  3. DORZOLAMIDE HYDROCHLORIDE. [Concomitant]
     Active Substance: DORZOLAMIDE HYDROCHLORIDE
     Indication: MALIGNANT GLAUCOMA
  4. ACETAZOLAMIDE. [Suspect]
     Active Substance: ACETAZOLAMIDE
     Indication: MALIGNANT GLAUCOMA
     Dosage: 1000 MILLIGRAM DAILY;
     Route: 048
  5. ATROPINE. [Concomitant]
     Active Substance: ATROPINE
     Indication: CYCLOPLEGIA
     Route: 061

REACTIONS (5)
  - Retinal ischaemia [Recovering/Resolving]
  - Vascular occlusion [Recovering/Resolving]
  - Retinal vascular occlusion [Recovering/Resolving]
  - Retinopathy sickle cell [Recovering/Resolving]
  - Chorioretinal disorder [Recovering/Resolving]
